FAERS Safety Report 4437855-0 (Version None)
Quarter: 2004Q3

REPORT INFORMATION
  Report Type: 
  Country: None (occurrence: None)
  Receive Date: 20040827
  Receipt Date: 20040816
  Transmission Date: 20050211
  Serious: Yes (Disabling, Other)
  Sender: FDA-Public Use
  Company Number: 2004056508

PATIENT
  Age: 70 Year
  Sex: Male

DRUGS (2)
  1. VIAGRA [Suspect]
     Indication: ERECTILE DYSFUNCTION
     Dosage: (100 MG, 1 IN 14 D), ORAL
     Route: 048
     Dates: start: 19990101
  2. ACETYLSALICYLATE CALCIUM (ACETYLSALICYLATE CALCIUM) [Concomitant]

REACTIONS (4)
  - BLINDNESS [None]
  - PUPILLARY REFLEX IMPAIRED [None]
  - RETINAL INFARCTION [None]
  - XANTHOPSIA [None]
